FAERS Safety Report 7944112-4 (Version None)
Quarter: 2011Q4

REPORT INFORMATION
  Report Type: 
  Country: None (occurrence: None)
  Receive Date: 20111128
  Receipt Date: 20111121
  Transmission Date: 20120403
  Serious: Yes (Disabling)
  Sender: FDA-Public Use
  Company Number: DE-ASTRAZENECA-2011SE60080

PATIENT
  Sex: Female
  Weight: 90 kg

DRUGS (1)
  1. CANDESARTAN CILEXETIL [Suspect]
     Indication: HYPERTENSION
     Route: 048

REACTIONS (3)
  - PERIODONTITIS [None]
  - TOOTH LOSS [None]
  - LOOSE TOOTH [None]
